FAERS Safety Report 24721132 (Version 1)
Quarter: 2024Q4

REPORT INFORMATION
  Report Type: Spontaneous
  Country: JP (occurrence: JP)
  Receive Date: 20241211
  Receipt Date: 20241211
  Transmission Date: 20250115
  Serious: Yes (Life-Threatening, Hospitalization, Other)
  Sender: SANDOZ
  Company Number: JP-NOVPHSZ-PHHY2018JP014293

PATIENT
  Age: 76 Year
  Sex: Female

DRUGS (4)
  1. BEVACIZUMAB [Suspect]
     Active Substance: BEVACIZUMAB
     Indication: Colorectal cancer recurrent
     Dosage: 7.5 MG/KG, UNK
     Route: 065
  2. CAPECITABINE [Suspect]
     Active Substance: CAPECITABINE
     Indication: Colorectal cancer recurrent
     Dosage: 1500 G/M2, QD
     Route: 065
  3. OXALIPLATIN [Suspect]
     Active Substance: OXALIPLATIN
     Indication: Colorectal cancer recurrent
     Dosage: 130 MG/M2, UNK
     Route: 065
  4. CAPECITABINE\OXALIPLATIN [Suspect]
     Active Substance: CAPECITABINE\OXALIPLATIN
     Indication: Colorectal cancer
     Dosage: UNK
     Route: 065

REACTIONS (8)
  - Cardio-respiratory arrest [Unknown]
  - Anaphylactic shock [Unknown]
  - Malaise [Unknown]
  - Nausea [Unknown]
  - Moaning [Unknown]
  - Loss of consciousness [Unknown]
  - Pulse absent [Unknown]
  - Cystitis [Unknown]
